FAERS Safety Report 14099607 (Version 18)
Quarter: 2021Q1

REPORT INFORMATION
  Report Type: Report from Study
  Country: CA (occurrence: CA)
  Receive Date: 20171017
  Receipt Date: 20210305
  Transmission Date: 20210419
  Serious: Yes (Life-Threatening, Hospitalization, Other)
  Sender: FDA-Public Use
  Company Number: PHHY2017CA134563

PATIENT
  Age: 69 Year
  Sex: Male

DRUGS (4)
  1. SANDOSTATIN LAR DEPOT [Suspect]
     Active Substance: OCTREOTIDE ACETATE
  2. SANDOSTATIN LAR DEPOT [Suspect]
     Active Substance: OCTREOTIDE ACETATE
  3. OCTREOTIDE. [Concomitant]
     Active Substance: OCTREOTIDE
     Indication: GASTRINOMA MALIGNANT
     Dosage: TID X 2 WEEKS
     Route: 058
     Dates: start: 20170602
  4. SANDOSTATIN LAR DEPOT [Suspect]
     Active Substance: OCTREOTIDE ACETATE
     Indication: GASTRINOMA MALIGNANT
     Dosage: 30 MG, Q4W (4 WEEKS)
     Route: 030
     Dates: start: 20170614

REACTIONS (11)
  - Suicidal ideation [Unknown]
  - Depressed level of consciousness [Unknown]
  - Blood pressure systolic increased [Unknown]
  - Body temperature decreased [Unknown]
  - Syringe issue [Unknown]
  - Haemoglobin decreased [Unknown]
  - Gout [Unknown]
  - Depression [Unknown]
  - Asthenia [Unknown]
  - Tremor [Unknown]
  - Musculoskeletal discomfort [Unknown]

NARRATIVE: CASE EVENT DATE: 2017
